FAERS Safety Report 8911105 (Version 1)
Quarter: 2012Q4

REPORT INFORMATION
  Report Type: 
  Country: FR (occurrence: FR)
  Receive Date: 20121116
  Receipt Date: 20121116
  Transmission Date: 20130627
  Serious: Yes (Hospitalization)
  Sender: FDA-Public Use
  Company Number: FR-ASTELLAS-2012EU009898

PATIENT
  Age: 25 Year
  Sex: Male
  Weight: 55 kg

DRUGS (21)
  1. PROGRAF [Suspect]
     Indication: PRODUCT USED FOR UNKNOWN INDICATION
     Dosage: 0.5 mg, bid
     Route: 048
  2. GENTAMYCIN                         /00047101/ [Suspect]
     Indication: DYSPNOEA
     Dosage: 100 mg, UID/QD
     Route: 042
     Dates: start: 201207, end: 201207
  3. TAVANIC [Suspect]
     Indication: DYSPNOEA
     Dosage: 1 g, UID/QD
     Route: 042
     Dates: start: 20120621
  4. NEBCINE [Suspect]
     Indication: LUNG DISORDER
     Dosage: 110 mg, UID/QD
     Route: 042
     Dates: start: 20120710, end: 20120715
  5. CEFTAZIDIME [Suspect]
     Indication: LUNG DISORDER
     Dosage: 2 g, Unknown/D
     Route: 042
     Dates: start: 20120710, end: 20120711
  6. ARAVA [Suspect]
     Indication: PRODUCT USED FOR UNKNOWN INDICATION
     Dosage: 2 DF, UID/QD
     Route: 048
  7. CERTICAN [Suspect]
     Indication: PRODUCT USED FOR UNKNOWN INDICATION
     Dosage: 0.5 mg, bid
     Route: 065
  8. TRIATEC                            /00885601/ [Concomitant]
     Indication: PRODUCT USED FOR UNKNOWN INDICATION
     Dosage: 0.5 mg, Unknown/D
     Route: 048
  9. TRIATEC                            /00885601/ [Concomitant]
     Dosage: 5 mg, UID/QD
     Route: 048
  10. PENTACARINAT [Concomitant]
     Indication: PRODUCT USED FOR UNKNOWN INDICATION
     Dosage: UNK
     Route: 065
  11. CREON 25000 [Concomitant]
     Indication: PRODUCT USED FOR UNKNOWN INDICATION
     Dosage: UNK
     Route: 065
  12. HYDROCORTICONE [Concomitant]
     Indication: PRODUCT USED FOR UNKNOWN INDICATION
     Dosage: 20 mg, Unknown/D
     Route: 065
  13. ACTONEL [Concomitant]
     Indication: PRODUCT USED FOR UNKNOWN INDICATION
     Dosage: 30 mg, Weekly
     Route: 065
  14. CALTRATE WITH VITAMIN D [Concomitant]
     Indication: PRODUCT USED FOR UNKNOWN INDICATION
     Dosage: 2 DF, Unknown/D
     Route: 065
  15. NOVORAPID [Concomitant]
     Indication: PRODUCT USED FOR UNKNOWN INDICATION
     Dosage: 6 U, tid
     Route: 065
  16. TARDYFERON [Concomitant]
     Indication: PRODUCT USED FOR UNKNOWN INDICATION
     Dosage: 80 UNK, tid
     Route: 065
  17. ZITHROMAX [Concomitant]
     Indication: PRODUCT USED FOR UNKNOWN INDICATION
     Dosage: 250 UNK, bid
     Route: 065
  18. LANTUS [Concomitant]
     Indication: PRODUCT USED FOR UNKNOWN INDICATION
     Dosage: 18 IU, Unknown/D
     Route: 065
  19. VASTEN                             /00880402/ [Concomitant]
     Indication: PRODUCT USED FOR UNKNOWN INDICATION
     Dosage: 40 mg, UID/QD
     Route: 065
  20. PAROXETINE [Concomitant]
     Indication: PRODUCT USED FOR UNKNOWN INDICATION
     Dosage: 20 UNK, UID/QD
     Route: 065
  21. VFEND [Concomitant]
     Indication: PRODUCT USED FOR UNKNOWN INDICATION
     Dosage: 3 DF, bid
     Route: 065

REACTIONS (2)
  - Overdose [Recovered/Resolved]
  - Renal failure acute [Recovered/Resolved]
